FAERS Safety Report 4271767-0 (Version None)
Quarter: 2004Q1

REPORT INFORMATION
  Report Type: 
  Country: None (occurrence: None)
  Receive Date: 20040115
  Receipt Date: 20000831
  Transmission Date: 20041129
  Serious: Yes (Hospitalization, Other)
  Sender: FDA-Public Use
  Company Number: US-GLAXOSMITHKLINE-A0334290A

PATIENT
  Age: 40 Year
  Sex: Female
  Weight: 58.96 kg

DRUGS (4)
  1. PAXIL [Suspect]
     Indication: ANXIETY
     Dosage: 10MG ALTERNATE DAYS
     Route: 048
     Dates: start: 20000801, end: 20000818
  2. PAXIL [Suspect]
     Dosage: 20MG PER DAY
     Route: 048
     Dates: start: 20000201, end: 20000810
  3. PAXIL [Suspect]
     Dosage: 10MG PER DAY
     Route: 048
     Dates: start: 20000810, end: 20000811
  4. XANAX [Concomitant]
     Dosage: .5MG AS REQUIRED
     Route: 048

REACTIONS (13)
  - ANOREXIA [None]
  - ATAXIA [None]
  - BALANCE DISORDER [None]
  - DEPENDENCE [None]
  - DIZZINESS [None]
  - DRUG DEPENDENCE [None]
  - DRUG WITHDRAWAL SYNDROME [None]
  - DYSPNOEA [None]
  - DYSSTASIA [None]
  - EXTRASYSTOLES [None]
  - NAUSEA [None]
  - PARAESTHESIA [None]
  - SINUS BRADYCARDIA [None]
